FAERS Safety Report 5453777-0 (Version None)
Quarter: 2007Q3

REPORT INFORMATION
  Report Type: 
  Country: None (occurrence: None)
  Receive Date: 20070917
  Receipt Date: 20070917
  Transmission Date: 20080115
  Serious: Yes (Other)
  Sender: FDA-Public Use
  Company Number: A0682106A

PATIENT

DRUGS (3)
  1. ALLI [Suspect]
     Route: 048
     Dates: start: 20070901
  2. SYNTHROID [Suspect]
  3. VITAMIN [Concomitant]

REACTIONS (2)
  - HYPOTHYROIDISM [None]
  - NIGHT SWEATS [None]
